FAERS Safety Report 23057912 (Version 4)
Quarter: 2023Q4

REPORT INFORMATION
  Report Type: Spontaneous
  Country: US (occurrence: US)
  Receive Date: 20231012
  Receipt Date: 20231114
  Transmission Date: 20240109
  Serious: No
  Sender: FDA-Public Use
  Company Number: US-SANOFI-01793649

PATIENT
  Age: 22 Year
  Sex: Female

DRUGS (1)
  1. LOVENOX [Suspect]
     Active Substance: ENOXAPARIN SODIUM
     Indication: Thrombosis prophylaxis
     Dosage: 65 MG, Q12H

REACTIONS (3)
  - Skin haemorrhage [Unknown]
  - Contusion [Unknown]
  - Needle issue [Unknown]
